FAERS Safety Report 17907113 (Version 1)
Quarter: 2020Q2

REPORT INFORMATION
  Report Type: Report from Study
  Country: US (occurrence: US)
  Receive Date: 20200617
  Receipt Date: 20200617
  Transmission Date: 20200714
  Serious: Yes (Death)
  Sender: FDA-Public Use
  Company Number: US-MYLANLABS-2020M1057035

PATIENT
  Age: 61 Year
  Sex: Male

DRUGS (7)
  1. ALTEPLASE. [Suspect]
     Active Substance: ALTEPLASE
     Dosage: UNK
     Route: 013
  2. EPTIFIBATIDE. [Suspect]
     Active Substance: EPTIFIBATIDE
     Dosage: 2 MICROGRAM/KILOGRAM, QMINUTE
  3. EPTIFIBATIDE. [Suspect]
     Active Substance: EPTIFIBATIDE
     Indication: DRUG THERAPY
     Dosage: 180 MICROGRAM/KILOGRAM
     Route: 040
  4. CLOPIDOGREL [Suspect]
     Active Substance: CLOPIDOGREL BISULFATE
     Indication: DRUG THERAPY
     Dosage: 300 MILLIGRAM
     Route: 048
  5. CLOPIDOGREL [Suspect]
     Active Substance: CLOPIDOGREL BISULFATE
     Dosage: 75 MILLIGRAM, QD
     Route: 048
  6. ASPIRIN                            /00002701/ [Suspect]
     Active Substance: ASPIRIN
     Indication: DRUG THERAPY
     Dosage: 325 MILLIGRAM, QD
     Route: 048
  7. ALTEPLASE. [Suspect]
     Active Substance: ALTEPLASE
     Indication: DRUG THERAPY
     Dosage: UNK
     Route: 042

REACTIONS (3)
  - Ischaemic stroke [Fatal]
  - Cerebral infarction [Fatal]
  - Haemorrhagic transformation stroke [Fatal]
